FAERS Safety Report 16976514 (Version 1)
Quarter: 2019Q4

REPORT INFORMATION
  Report Type: Spontaneous
  Country: US (occurrence: US)
  Receive Date: 20191030
  Receipt Date: 20191030
  Transmission Date: 20200122
  Serious: No
  Sender: FDA-Public Use
  Company Number: US-LNK INTERNATIONAL, INC.-2076241

PATIENT
  Sex: Male

DRUGS (1)
  1. CHLORPHENIRAMINE MALEATE 4MG YELLOW TABLETS [Suspect]
     Active Substance: CHLORPHENIRAMINE MALEATE
     Indication: RASH

REACTIONS (1)
  - Rash [None]
